FAERS Safety Report 8970853 (Version 1)
Quarter: 2012Q4

REPORT INFORMATION
  Report Type: 
  Country: US (occurrence: US)
  Receive Date: 20121218
  Receipt Date: 20121218
  Transmission Date: 20130627
  Serious: Yes (Disabling)
  Sender: FDA-Public Use
  Company Number: US-ELI_LILLY_AND_COMPANY-US201212003989

PATIENT
  Age: 63 Year
  Sex: Female

DRUGS (3)
  1. HUMALOG LISPRO [Suspect]
     Indication: DIABETES MELLITUS
     Dosage: 10 u, tid
  2. HUMALOG LISPRO [Suspect]
     Dosage: 58 u, single
  3. LANTUS [Concomitant]
     Dosage: 58 u, UNK

REACTIONS (2)
  - Unevaluable event [Unknown]
  - Wrong drug administered [Unknown]
